FAERS Safety Report 23942988 (Version 2)
Quarter: 2024Q2

REPORT INFORMATION
  Report Type: Spontaneous
  Country: US (occurrence: US)
  Receive Date: 20240605
  Receipt Date: 20240613
  Transmission Date: 20240716
  Serious: Yes (Hospitalization, Other)
  Sender: FDA-Public Use
  Company Number: US-Stemline Therapeutics, Inc.-2024ST003404

PATIENT
  Age: 77 Year
  Sex: Female

DRUGS (2)
  1. ORSERDU [Suspect]
     Active Substance: ELACESTRANT
     Indication: Product used for unknown indication
     Dosage: 345MG ONCE DAILY
     Route: 048
     Dates: start: 20240127
  2. TRUQAP [Suspect]
     Active Substance: CAPIVASERTIB
     Indication: Breast cancer female
     Dosage: 400MG TWICE A DAY FOR 4 DAYS, THEN 3 DAYS OFF
     Dates: start: 20240511

REACTIONS (3)
  - Blood glucose increased [Unknown]
  - Respiratory disorder [Unknown]
  - Diabetic ketoacidosis [Unknown]
